FAERS Safety Report 6900795-9 (Version None)
Quarter: 2010Q3

REPORT INFORMATION
  Report Type: 
  Country: None (occurrence: None)
  Receive Date: 20100730
  Receipt Date: 20100720
  Transmission Date: 20110219
  Serious: Yes (Hospitalization, Other)
  Sender: FDA-Public Use
  Company Number: 2010MA001053

PATIENT
  Age: 29 Year
  Sex: Female

DRUGS (5)
  1. DICLOFENAC SODIUM EXTENDED-RELEASE TABLETS, 100 MG (PUREPAC) (DICLOFEN [Suspect]
     Indication: ARTHRALGIA
     Dates: start: 20060615, end: 20061201
  2. HUMIRA [Suspect]
     Indication: PSORIATIC ARTHROPATHY
     Dosage: 40 MG;QW;SC
     Route: 058
     Dates: start: 20060808, end: 20070925
  3. NOVYNETTE (NOVYNETTE) [Suspect]
     Indication: CONTRACEPTION
     Dosage: PO
     Route: 048
     Dates: start: 19990601, end: 20070701
  4. CON MEDS [Concomitant]
  5. PREV MEDS [Concomitant]

REACTIONS (3)
  - DRUG INTERACTION [None]
  - OVARIAN CYST RUPTURED [None]
  - PERITONEAL HAEMORRHAGE [None]
